FAERS Safety Report 6408543-6 (Version None)
Quarter: 2009Q4

REPORT INFORMATION
  Report Type: 
  Country: None (occurrence: None)
  Receive Date: 20091021
  Receipt Date: 20091013
  Transmission Date: 20100525
  Serious: Yes (Other)
  Sender: FDA-Public Use
  Company Number: BR-ASTRAZENECA-2009SE20321

PATIENT
  Age: 50 Year
  Sex: Female
  Weight: 90 kg

DRUGS (4)
  1. NEXIUM [Suspect]
     Indication: GASTRITIS
     Dosage: AS REQUIRED
     Route: 048
     Dates: start: 20070101
  2. NEXIUM [Suspect]
     Indication: DYSPEPSIA
     Dosage: AS REQUIRED
     Route: 048
     Dates: start: 20070101
  3. NEXIUM [Suspect]
     Dosage: DAILY
     Route: 048
     Dates: start: 20090701
  4. NEXIUM [Suspect]
     Dosage: DAILY
     Route: 048
     Dates: start: 20090701

REACTIONS (4)
  - BREAST CANCER [None]
  - DRUG INEFFECTIVE [None]
  - DYSPEPSIA [None]
  - FATIGUE [None]
